FAERS Safety Report 23290281 (Version 1)
Quarter: 2023Q4

REPORT INFORMATION
  Report Type: Spontaneous
  Country: US (occurrence: US)
  Receive Date: 20231213
  Receipt Date: 20231213
  Transmission Date: 20240110
  Serious: Yes (Other)
  Sender: FDA-Public Use
  Company Number: US-APOTEX-2023AP017891

PATIENT
  Age: 54 Year
  Sex: Female

DRUGS (1)
  1. FOSPHENYTOIN [Suspect]
     Active Substance: FOSPHENYTOIN
     Indication: Product used for unknown indication
     Dosage: UNK
     Route: 065

REACTIONS (2)
  - Respiratory failure [Unknown]
  - Arrhythmia [Unknown]
